FAERS Safety Report 12996049 (Version 1)
Quarter: 2016Q4

REPORT INFORMATION
  Report Type: Spontaneous
  Country: US (occurrence: US)
  Receive Date: 20161202
  Receipt Date: 20161202
  Transmission Date: 20170207
  Serious: Yes (Hospitalization)
  Sender: FDA-Public Use
  Company Number: GXBR2016US003499

PATIENT
  Age: 60 Year
  Sex: Female

DRUGS (15)
  1. 5-FU [Suspect]
     Active Substance: FLUOROURACIL
     Dosage: 2400 MG/M2, BIW
     Route: 042
     Dates: start: 20141217, end: 20141217
  2. 5-FU [Suspect]
     Active Substance: FLUOROURACIL
     Dosage: 2400 MG/M2, BIW
     Route: 042
     Dates: start: 20150114, end: 20150114
  3. BEVACIZUMAB [Suspect]
     Active Substance: BEVACIZUMAB
     Indication: COLORECTAL CANCER METASTATIC
     Dosage: 5 MG/KG, BIW
     Route: 042
     Dates: start: 20140929, end: 20140929
  4. SANCUSO [Concomitant]
     Active Substance: GRANISETRON
     Indication: PRODUCT USED FOR UNKNOWN INDICATION
     Dosage: 0.5 MG, UNK
     Route: 062
  5. IRINOTECAN HYDROCHLORIDE. [Suspect]
     Active Substance: IRINOTECAN HYDROCHLORIDE
     Dosage: 120 MG/M2, BIW
     Route: 042
     Dates: start: 20150114, end: 20150114
  6. ELOXATIN [Suspect]
     Active Substance: OXALIPLATIN
     Indication: COLORECTAL CANCER METASTATIC
     Dosage: 5 MG/KG, BIW
     Route: 042
     Dates: start: 20140929, end: 20140929
  7. ELOXATIN [Suspect]
     Active Substance: OXALIPLATIN
     Dosage: 5 MG/KG, BIW
     Route: 042
     Dates: start: 20150114, end: 20150114
  8. LEUCOVORIN. [Suspect]
     Active Substance: LEUCOVORIN
     Dosage: 200 MG/M2, BIW
     Route: 042
     Dates: start: 20140929, end: 20140929
  9. ATIVAN [Concomitant]
     Active Substance: LORAZEPAM
     Indication: PRODUCT USED FOR UNKNOWN INDICATION
     Dosage: 0.5 MG, UNK
     Route: 065
  10. IRINOTECAN HYDROCHLORIDE. [Suspect]
     Active Substance: IRINOTECAN HYDROCHLORIDE
     Indication: COLORECTAL CANCER METASTATIC
     Dosage: 165 MG/M2, BIW
     Route: 042
     Dates: start: 20140929, end: 20140929
  11. IRINOTECAN HYDROCHLORIDE. [Suspect]
     Active Substance: IRINOTECAN HYDROCHLORIDE
     Dosage: 200 MG/M2, BIW
     Route: 042
     Dates: start: 20141217, end: 20141217
  12. 5-FU [Suspect]
     Active Substance: FLUOROURACIL
     Indication: COLORECTAL CANCER METASTATIC
     Dosage: 3200 MG/M2, BIW
     Route: 042
     Dates: start: 20140929, end: 20140929
  13. BEVACIZUMAB [Suspect]
     Active Substance: BEVACIZUMAB
     Dosage: 5 MG/KG, BIW
     Route: 042
     Dates: start: 20141217, end: 20141217
  14. ELOXATIN [Suspect]
     Active Substance: OXALIPLATIN
     Dosage: 5 MG/KG, BIW
     Route: 042
     Dates: start: 20141217, end: 20141217
  15. LEUCOVORIN. [Suspect]
     Active Substance: LEUCOVORIN
     Dosage: 200 MG/M2, BIW
     Route: 042
     Dates: start: 20141217, end: 20141217

REACTIONS (2)
  - Vomiting [Recovered/Resolved]
  - Nausea [Recovered/Resolved]

NARRATIVE: CASE EVENT DATE: 20141016
